FAERS Safety Report 6570428-2 (Version None)
Quarter: 2010Q1

REPORT INFORMATION
  Report Type: 
  Country: None (occurrence: None)
  Receive Date: 20100204
  Receipt Date: 20090505
  Transmission Date: 20100710
  Serious: No
  Sender: FDA-Public Use
  Company Number: A0778449A

PATIENT
  Age: 62 Year
  Sex: Female

DRUGS (6)
  1. ARIXTRA [Suspect]
     Indication: BLOOD DISORDER
     Dosage: 7.5MG PER DAY
     Route: 058
     Dates: start: 20090406, end: 20090410
  2. COUMADIN [Concomitant]
  3. LISINOPRIL [Concomitant]
  4. XANAX [Concomitant]
  5. SIMVASTATIN [Concomitant]
  6. GLYBURIDE [Concomitant]

REACTIONS (3)
  - DRUG INEFFECTIVE [None]
  - PRODUCT QUALITY ISSUE [None]
  - PROTHROMBIN TIME SHORTENED [None]
